FAERS Safety Report 22134981 (Version 1)
Quarter: 2023Q1

REPORT INFORMATION
  Report Type: Spontaneous
  Country: US (occurrence: None)
  Receive Date: 20230323
  Receipt Date: 20230323
  Transmission Date: 20230418
  Serious: Yes (Other)
  Sender: FDA-Public Use
  Company Number: None

PATIENT
  Age: 59 Year
  Sex: Male
  Weight: 75.15 kg

DRUGS (1)
  1. HYDROCODONE [Suspect]
     Active Substance: HYDROCODONE
     Indication: Back pain

REACTIONS (5)
  - Blood pressure increased [None]
  - Hypoaesthesia [None]
  - Vision blurred [None]
  - Feeling hot [None]
  - Respiratory distress [None]

NARRATIVE: CASE EVENT DATE: 20230214
